FAERS Safety Report 9053824 (Version 1)
Quarter: 2013Q1

REPORT INFORMATION
  Report Type: Spontaneous
  Country: LT (occurrence: LT)
  Receive Date: 20130207
  Receipt Date: 20130207
  Transmission Date: 20140127
  Serious: Yes (Hospitalization)
  Sender: FDA-Public Use
  Company Number: LT-GLAXOSMITHKLINE-B0847934A

PATIENT
  Age: 34 None
  Sex: Female

DRUGS (1)
  1. VOTRIENT [Suspect]
     Indication: ENDOMETRIAL SARCOMA
     Dosage: 800MG PER DAY
     Route: 065
     Dates: start: 20121008, end: 2012

REACTIONS (2)
  - Thrombosis [Recovered/Resolved]
  - Disease progression [Unknown]
